FAERS Safety Report 17591087 (Version 2)
Quarter: 2020Q2

REPORT INFORMATION
  Report Type: Spontaneous
  Country: US (occurrence: US)
  Receive Date: 20200327
  Receipt Date: 20200402
  Transmission Date: 20200713
  Serious: No
  Sender: FDA-Public Use
  Company Number: US-PFIZER INC-2020124241

PATIENT

DRUGS (1)
  1. COLESTIPOL HCL [Suspect]
     Active Substance: COLESTIPOL HYDROCHLORIDE
     Dosage: 1 G, UNK

REACTIONS (3)
  - Product odour abnormal [Unknown]
  - Poor quality product administered [Unknown]
  - Urine odour abnormal [Unknown]
